FAERS Safety Report 7974190-8 (Version None)
Quarter: 2011Q4

REPORT INFORMATION
  Report Type: 
  Country: None (occurrence: None)
  Receive Date: 20111213
  Receipt Date: 20110818
  Transmission Date: 20120403
  Serious: No
  Sender: FDA-Public Use
  Company Number: US-BAYER-2011-079381

PATIENT

DRUGS (2)
  1. LEVAQUIN [Concomitant]
     Indication: KIDNEY INFECTION
     Dosage: UNK
     Dates: start: 20110601
  2. ALEVE (CAPLET) [Suspect]
     Dosage: UNK
     Route: 048
     Dates: start: 20110601

REACTIONS (1)
  - DRUG INEFFECTIVE [None]
